FAERS Safety Report 5678705-4 (Version None)
Quarter: 2008Q1

REPORT INFORMATION
  Report Type: 
  Country: None (occurrence: None)
  Receive Date: 20080324
  Receipt Date: 20080324
  Transmission Date: 20080703
  Serious: Yes (Hospitalization, Other)
  Sender: FDA-Public Use
  Company Number: None

PATIENT
  Age: 42 Year
  Sex: Male
  Weight: 113.3993 kg

DRUGS (2)
  1. LEVAQUIN [Suspect]
     Indication: NASAL OPERATION
     Dosage: 1 PILL A DAY PO
     Route: 048
     Dates: start: 20070126, end: 20070213
  2. LEVAQUIN [Suspect]
     Indication: NASAL OPERATION
     Dosage: 1 PILL A DAY PO
     Route: 048
     Dates: start: 20070610

REACTIONS (1)
  - ABDOMINAL PAIN [None]
